FAERS Safety Report 4451706-X (Version None)
Quarter: 2004Q3

REPORT INFORMATION
  Report Type: 
  Country: None (occurrence: None)
  Receive Date: 20040915
  Receipt Date: 20040907
  Transmission Date: 20050211
  Serious: Yes (Other)
  Sender: FDA-Public Use
  Company Number: 2004-09-0281

PATIENT

DRUGS (2)
  1. REBETOL [Suspect]
     Indication: HEPATITIS C
     Dosage: ORAL
     Route: 048
  2. INTRON A [Suspect]
     Indication: HEPATITIS C
     Dosage: 6 MIU INTRAMUSCULAR
     Route: 030
     Dates: start: 20040417, end: 20040903

REACTIONS (2)
  - BLADDER CANCER [None]
  - HAEMATURIA [None]
